FAERS Safety Report 7285226-4 (Version None)
Quarter: 2011Q1

REPORT INFORMATION
  Report Type: 
  Country: None (occurrence: None)
  Receive Date: 20110210
  Receipt Date: 20110208
  Transmission Date: 20110831
  Serious: Yes (Life-Threatening, Other)
  Sender: FDA-Public Use
  Company Number: US-AMGEN-USASP2011000458

PATIENT
  Age: 14 Year
  Sex: Female
  Weight: 100.5 kg

DRUGS (4)
  1. NPLATE [Suspect]
     Indication: IDIOPATHIC THROMBOCYTOPENIC PURPURA
     Dosage: 100 A?G, QWK
     Route: 058
     Dates: start: 20101214, end: 20110104
  2. NPLATE [Suspect]
     Dosage: 200 A?G, UNK
     Dates: start: 20110124
  3. PREDNISONE [Concomitant]
     Dosage: 60 MG, BID
     Route: 048
     Dates: start: 20101202, end: 20101226
  4. IRON [Concomitant]

REACTIONS (8)
  - EPISTAXIS [None]
  - PURPURA [None]
  - PETECHIAE [None]
  - MENORRHAGIA [None]
  - HEADACHE [None]
  - THERAPEUTIC RESPONSE DECREASED [None]
  - CONTUSION [None]
  - PLATELET COUNT DECREASED [None]
